FAERS Safety Report 9281053 (Version 1)
Quarter: 2013Q2

REPORT INFORMATION
  Report Type: Spontaneous
  Country: US (occurrence: None)
  Receive Date: 20130508
  Receipt Date: 20130508
  Transmission Date: 20140414
  Serious: Yes (Hospitalization)
  Sender: FDA-Public Use
  Company Number: None

PATIENT
  Sex: Female
  Weight: 63.5 kg

DRUGS (4)
  1. INCIVEK [Suspect]
     Indication: HEPATITIS C
     Dosage: 375MG TABLET  2 TABLETS, 3 TIMES DAY -} INCIVEK
     Dates: start: 20130215, end: 20130405
  2. RIBAVIRIN [Suspect]
     Indication: HEPATITIS C
     Dosage: 200MG/CAPSULE  3 PILLS TWICE DAILY -} RIBAVIRIN
     Dates: start: 20130215, end: 20130405
  3. PEGASYS [Suspect]
     Indication: HEPATITIS C
     Dosage: 1 INJECTION PEGASYS WEEKLY
     Dates: start: 20130215, end: 20130405
  4. OMEPRAZOLE [Concomitant]

REACTIONS (3)
  - Pneumonia [None]
  - Heart rate increased [None]
  - Swelling face [None]
